FAERS Safety Report 8809314 (Version 1)
Quarter: 2012Q4

REPORT INFORMATION
  Report Type: Spontaneous
  Country: US (occurrence: None)
  Receive Date: 20120924
  Receipt Date: 20120924
  Transmission Date: 20130627
  Serious: Yes (Other)
  Sender: FDA-Public Use
  Company Number: None

PATIENT
  Age: 48 Year
  Sex: Male
  Weight: 72.58 kg

DRUGS (1)
  1. DIPHENHYDRAMINE [Suspect]
     Indication: SLEEP DISORDER

REACTIONS (5)
  - Hallucination [None]
  - Memory impairment [None]
  - Muscle disorder [None]
  - Unevaluable event [None]
  - Convulsion [None]
